FAERS Safety Report 6892641-7 (Version None)
Quarter: 2010Q3

REPORT INFORMATION
  Report Type: 
  Country: None (occurrence: None)
  Receive Date: 20100731
  Receipt Date: 20081107
  Transmission Date: 20110219
  Serious: No
  Sender: FDA-Public Use
  Company Number: US-PFIZER INC-2008044330

PATIENT
  Sex: Male
  Weight: 76 kg

DRUGS (11)
  1. NORVASC [Suspect]
     Indication: HYPERTENSION
     Dates: end: 20071010
  2. NORVASC [Suspect]
     Dates: start: 20080515, end: 20080519
  3. AMLODIPINE [Suspect]
     Indication: HYPERTENSION
     Dates: start: 20070923
  4. AMLODIPINE [Suspect]
     Dates: start: 20080105, end: 20080227
  5. LISINOPRIL AND HYDROCHLOROTHIAZIDE [Suspect]
     Indication: HYPERTENSION
     Dates: start: 20080222, end: 20080310
  6. ZETIA [Concomitant]
  7. LOVASTATIN [Concomitant]
  8. ONE-A-DAY [Concomitant]
  9. COD-LIVER OIL [Concomitant]
  10. FISH OIL [Concomitant]
  11. ACETYLSALICYLIC ACID SRT [Concomitant]

REACTIONS (2)
  - CHEST PAIN [None]
  - MUSCULOSKELETAL PAIN [None]
